FAERS Safety Report 11821577 (Version 1)
Quarter: 2015Q4

REPORT INFORMATION
  Report Type: Spontaneous
  Country: US (occurrence: US)
  Receive Date: 20151210
  Receipt Date: 20151210
  Transmission Date: 20160305
  Serious: No
  Sender: FDA-Public Use
  Company Number: US-JNJFOC-20150423880

PATIENT
  Age: 73 Year
  Sex: Male

DRUGS (9)
  1. IMDUR [Concomitant]
     Active Substance: ISOSORBIDE MONONITRATE
  2. NITROSTAT [Concomitant]
     Active Substance: NITROGLYCERIN
  3. NORCO [Concomitant]
     Active Substance: ACETAMINOPHEN\HYDROCODONE BITARTRATE
  4. LOPRESSOR [Concomitant]
     Active Substance: METOPROLOL TARTRATE
  5. ASPIRIN. [Concomitant]
     Active Substance: ASPIRIN
  6. IMBRUVICA [Suspect]
     Active Substance: IBRUTINIB
     Indication: CHRONIC LYMPHOCYTIC LEUKAEMIA
     Route: 048
     Dates: start: 20150117
  7. CRESTOR [Concomitant]
     Active Substance: ROSUVASTATIN CALCIUM
  8. LEVOTHROID [Concomitant]
     Active Substance: LEVOTHYROXINE SODIUM
  9. GLYBURIDE. [Concomitant]
     Active Substance: GLYBURIDE

REACTIONS (2)
  - Arthralgia [Unknown]
  - Incorrect dose administered [Unknown]

NARRATIVE: CASE EVENT DATE: 2015
